FAERS Safety Report 21173388 (Version 1)
Quarter: 2022Q3

REPORT INFORMATION
  Report Type: Spontaneous
  Country: RU (occurrence: RU)
  Receive Date: 20220804
  Receipt Date: 20220804
  Transmission Date: 20221026
  Serious: Yes (Hospitalization)
  Sender: FDA-Public Use
  Company Number: RU-SA-2022SA314252

PATIENT
  Age: 41 Year
  Sex: Male
  Weight: 78 kg

DRUGS (3)
  1. PLAVIX [Suspect]
     Active Substance: CLOPIDOGREL BISULFATE
     Indication: Completed suicide
     Dosage: 20 TABLETS (1500 MG), 1X
     Route: 048
     Dates: start: 20220727, end: 20220727
  2. ATORVASTATIN [Suspect]
     Active Substance: ATORVASTATIN
     Indication: Completed suicide
     Dosage: 30 TABLETS (600 MG), 1X
     Route: 048
     Dates: start: 20220727, end: 20220727
  3. METOPROLOL [Suspect]
     Active Substance: METOPROLOL
     Indication: Completed suicide
     Dosage: 20 TABLETS (1000 MG), 1X
     Route: 048
     Dates: start: 20220727, end: 20220727

REACTIONS (2)
  - Asthenia [Unknown]
  - Dizziness [Unknown]

NARRATIVE: CASE EVENT DATE: 20220727
